FAERS Safety Report 5242349-9 (Version None)
Quarter: 2007Q1

REPORT INFORMATION
  Report Type: 
  Country: None (occurrence: None)
  Receive Date: 20070216
  Receipt Date: 20070216
  Transmission Date: 20070707
  Serious: Yes (Hospitalization)
  Sender: FDA-Public Use
  Company Number: None

PATIENT
  Age: 64 Year
  Sex: Male

DRUGS (7)
  1. FOSINOPRIL SODIUM [Suspect]
     Indication: HYPERTENSION
     Dosage: 40 MG BID
     Dates: start: 20050501
  2. METOPROLOL SUCCINATE [Concomitant]
  3. ASPIRIN [Concomitant]
  4. DILTIAZEM [Concomitant]
  5. NITROGLYCERIN [Concomitant]
  6. OMEPRAZOLE [Concomitant]
  7. HYDRALAZINE HCL [Concomitant]

REACTIONS (1)
  - ANGIOEDEMA [None]
